FAERS Safety Report 22524058 (Version 2)
Quarter: 2023Q2

REPORT INFORMATION
  Report Type: Spontaneous
  Country: US (occurrence: US)
  Receive Date: 20230606
  Receipt Date: 20230629
  Transmission Date: 20230721
  Serious: No
  Sender: FDA-Public Use
  Company Number: US-Vifor (International) Inc.-VIT-2023-03604

PATIENT
  Age: 77 Year
  Sex: Female

DRUGS (17)
  1. MIRCERA [Suspect]
     Active Substance: METHOXY POLYETHYLENE GLYCOL-EPOETIN BETA
     Indication: Nephrogenic anaemia
     Route: 058
     Dates: start: 20221214, end: 20230216
  2. MIRCERA [Suspect]
     Active Substance: METHOXY POLYETHYLENE GLYCOL-EPOETIN BETA
     Dosage: MIRCERA DOSE NUMBER 11 AND DOSE CATEGORY 11 TO 15
     Route: 058
     Dates: start: 20230216
  3. AMLODIPINE [Concomitant]
     Active Substance: AMLODIPINE BESYLATE
     Indication: Hypertension
     Dosage: 1 TABLET EVERY EVENING
     Route: 048
  4. ASPIRIN [Concomitant]
     Active Substance: ASPIRIN
     Indication: Cardiovascular event prophylaxis
     Dosage: 1 TABLET
     Route: 048
  5. CALCITRIOL [Concomitant]
     Active Substance: CALCITRIOL
     Indication: Hyperparathyroidism
     Dosage: 1 CAPSULE ONCE A DAY ([TAKE WITH 0.5 MCG TO TOTAL 0.75 MCG DAILY)
     Route: 048
     Dates: start: 20220929
  6. CALCITRIOL [Concomitant]
     Active Substance: CALCITRIOL
     Dosage: 1 CAPSULE ONCE A DAY
     Route: 048
  7. CARVEDILOL [Concomitant]
     Active Substance: CARVEDILOL
     Indication: Hypertension
     Dosage: 1 TABLET
     Route: 048
  8. FERROUS SULFATE [Concomitant]
     Active Substance: FERROUS SULFATE
     Indication: Mineral supplementation
     Dosage: 1 TABLET
     Route: 048
  9. LASIX [Concomitant]
     Active Substance: FUROSEMIDE
     Indication: Diuretic therapy
     Dosage: 1 TABLET
     Route: 048
     Dates: start: 20221005
  10. GENTAMICIN [Concomitant]
     Active Substance: GENTAMICIN
     Dosage: 1 A SMALL AMOUNT
     Route: 061
  11. HEPARIN SODIUM, PORCINE [Concomitant]
     Active Substance: HEPARIN SODIUM
     Dosage: 1,000 UNIT/ML 10 ML TWICE A WEEK
  12. HYDRALAZINE [Concomitant]
     Active Substance: HYDRALAZINE HYDROCHLORIDE
     Dosage: 1 TABLET
     Route: 048
  13. HYDROXYZINE HYDROCHLORIDE [Concomitant]
     Active Substance: HYDROXYZINE HYDROCHLORIDE
     Indication: Pruritus
     Dosage: 1 TABLET
     Route: 048
  14. ISOSORBIDE MONONITRATE [Concomitant]
     Active Substance: ISOSORBIDE MONONITRATE
     Dosage: 1 TABLET
     Route: 048
  15. LEVEMIR FLEXTOUCH U-100 INSULN [Concomitant]
     Dosage: 100 UNIT/ML 10 UNIT AT BEDTIME
     Route: 058
  16. LISINOPRIL [Concomitant]
     Active Substance: LISINOPRIL
     Dosage: 1 TABLET
     Route: 048
  17. TIMOLOL MALEATE [Concomitant]
     Active Substance: TIMOLOL MALEATE
     Dosage: 1 DROP
     Route: 047

REACTIONS (6)
  - Drug hypersensitivity [Recovered/Resolved]
  - Rash macular [Unknown]
  - Skin discolouration [Unknown]
  - Skin irritation [Unknown]
  - Urticaria [Recovered/Resolved]
  - Pruritus [Unknown]

NARRATIVE: CASE EVENT DATE: 20221214
